FAERS Safety Report 7300718-7 (Version None)
Quarter: 2011Q1

REPORT INFORMATION
  Report Type: 
  Country: None (occurrence: None)
  Receive Date: 20110103
  Receipt Date: 20090204
  Transmission Date: 20110831
  Serious: Yes (Hospitalization, Other)
  Sender: FDA-Public Use
  Company Number: US-002437

PATIENT
  Age: 9 Year
  Sex: Male
  Weight: 57 kg

DRUGS (3)
  1. PROHANCE [Suspect]
     Indication: NUCLEAR MAGNETIC RESONANCE IMAGING BRAIN
     Dosage: 10ML ONCE INTRAVENOUS
     Route: 042
     Dates: start: 20090130, end: 20090130
  2. PROHANCE [Suspect]
     Indication: CEREBRAL DISORDER
     Dosage: 10ML ONCE INTRAVENOUS
     Route: 042
     Dates: start: 20090130, end: 20090130
  3. PROPOFOL [Concomitant]

REACTIONS (1)
  - HYPERSENSITIVITY [None]
